FAERS Safety Report 6522217-2 (Version None)
Quarter: 2009Q4

REPORT INFORMATION
  Report Type: 
  Country: None (occurrence: None)
  Receive Date: 20091229
  Receipt Date: 20091229
  Transmission Date: 20100525
  Serious: No
  Sender: FDA-Public Use
  Company Number: None

PATIENT
  Age: 81 Year
  Sex: Male
  Weight: 92 kg

DRUGS (2)
  1. MORPHINE [Suspect]
     Indication: HYPERVENTILATION
     Dosage: 2MG IV X1; 15MG PO X 1
     Route: 042
     Dates: start: 20091117
  2. LORAZEPAM [Concomitant]

REACTIONS (4)
  - DYSPNOEA [None]
  - HYPERTENSION [None]
  - HYPOTENSION [None]
  - TACHYPNOEA [None]
